FAERS Safety Report 22308046 (Version 1)
Quarter: 2023Q2

REPORT INFORMATION
  Report Type: Spontaneous
  Country: DE (occurrence: DE)
  Receive Date: 20230511
  Receipt Date: 20230511
  Transmission Date: 20230721
  Serious: Yes (Other)
  Sender: FDA-Public Use
  Company Number: DE-HBP-2023DE028826

PATIENT
  Age: 77 Year
  Sex: Male

DRUGS (3)
  1. MECHLORETHAMINE HYDROCHLORIDE [Suspect]
     Active Substance: MECHLORETHAMINE HYDROCHLORIDE
     Indication: Cutaneous T-cell lymphoma
     Dosage: UNK, UNKNOWN
     Route: 061
     Dates: start: 202008
  2. MECHLORETHAMINE HYDROCHLORIDE [Suspect]
     Active Substance: MECHLORETHAMINE HYDROCHLORIDE
     Dosage: UNK, 3/WEEK
     Route: 061
     Dates: start: 202302, end: 2023
  3. TACROLIMUS [Concomitant]
     Active Substance: TACROLIMUS
     Indication: Cutaneous T-cell lymphoma
     Dosage: UNK, UNKNOWN

REACTIONS (5)
  - Dermatitis [Recovered/Resolved]
  - Skin discharge [Recovered/Resolved]
  - Skin plaque [Unknown]
  - Off label use [Unknown]
  - Erythema [Unknown]

NARRATIVE: CASE EVENT DATE: 20230201
